FAERS Safety Report 21020562 (Version 1)
Quarter: 2022Q2

REPORT INFORMATION
  Report Type: Spontaneous
  Country: US (occurrence: None)
  Receive Date: 20220629
  Receipt Date: 20220629
  Transmission Date: 20220721
  Serious: No
  Sender: FDA-Public Use
  Company Number: 2022A225066

PATIENT
  Sex: Male

DRUGS (1)
  1. TEZSPIRE [Suspect]
     Active Substance: TEZEPELUMAB-EKKO
     Indication: Asthma
     Dosage: 210ML/KG EVERY FOUR WEEKS
     Route: 058
     Dates: end: 20220603

REACTIONS (3)
  - Chest discomfort [Unknown]
  - Cough [Unknown]
  - Wheezing [Unknown]
